FAERS Safety Report 9303676 (Version 2)
Quarter: 2013Q2

REPORT INFORMATION
  Report Type: Spontaneous
  Country: US (occurrence: None)
  Receive Date: 20130516
  Receipt Date: 20130516
  Transmission Date: 20140414
  Serious: Yes (Hospitalization)
  Sender: FDA-Public Use
  Company Number: 2013AP005170

PATIENT
  Age: 67 Year
  Sex: Female

DRUGS (7)
  1. ZIPRASIDONE HYDROCHLORIDE [Suspect]
     Indication: BIPOLAR II DISORDER
  2. SERTRALINE [Concomitant]
  3. VENLAFAXINE [Concomitant]
  4. QUETIAPINE [Concomitant]
  5. LITHIUM [Concomitant]
  6. VALPROATE SODIUM [Concomitant]
  7. CLONAZEPAM [Concomitant]

REACTIONS (4)
  - Akathisia [None]
  - Depression [None]
  - Suicidal ideation [None]
  - Condition aggravated [None]
